FAERS Safety Report 9820435 (Version 1)
Quarter: 2013Q4

REPORT INFORMATION
  Report Type: Spontaneous
  Country: US (occurrence: None)
  Receive Date: 20131223
  Receipt Date: 20131223
  Transmission Date: 20140711
  Serious: No
  Sender: FDA-Public Use
  Company Number: 220630

PATIENT
  Age: 55 Year
  Sex: Female

DRUGS (1)
  1. PICATO [Suspect]
     Indication: HEAVY EXPOSURE TO ULTRAVIOLET LIGHT
     Dosage: 1 IN 1 D, TOPICAL
     Route: 061
     Dates: start: 20130213, end: 20130215

REACTIONS (4)
  - Application site dryness [None]
  - Application site erythema [None]
  - Application site exfoliation [None]
  - Drug administered at inappropriate site [None]
